FAERS Safety Report 25509923 (Version 1)
Quarter: 2025Q3

REPORT INFORMATION
  Report Type: Spontaneous
  Country: US (occurrence: None)
  Receive Date: 20250702
  Receipt Date: 20250702
  Transmission Date: 20251021
  Serious: Yes (Other)
  Sender: FDA-CTU
  Company Number: None

PATIENT
  Age: 16 Month
  Sex: Male
  Weight: 11.8 kg

DRUGS (4)
  1. TADALAFIL [Suspect]
     Active Substance: TADALAFIL
     Dates: start: 20250427, end: 20250701
  2. PROPRANOLOL [Suspect]
     Active Substance: PROPRANOLOL HYDROCHLORIDE
  3. AMLODIPINE [Concomitant]
     Active Substance: AMLODIPINE BESYLATE
     Dates: start: 20250428, end: 20250702
  4. Bactrim (sulfamethoxazole-trimethoprim) suspension [Concomitant]
     Dates: start: 20250627, end: 20250701

REACTIONS (6)
  - Angioedema [None]
  - Grunting [None]
  - Hypersensitivity [None]
  - Dyspnoea [None]
  - Oxygen saturation decreased [None]
  - Obstructive airways disorder [None]

NARRATIVE: CASE EVENT DATE: 20250701
